FAERS Safety Report 4300468-5 (Version None)
Quarter: 2004Q1

REPORT INFORMATION
  Report Type: 
  Country: None (occurrence: None)
  Receive Date: 20040218
  Receipt Date: 20040209
  Transmission Date: 20041129
  Serious: Yes (Life-Threatening, Hospitalization)
  Sender: FDA-Public Use
  Company Number: 233284K03USA

PATIENT
  Age: 32 Year
  Sex: Male

DRUGS (6)
  1. REBIF [Suspect]
     Indication: MULTIPLE SCLEROSIS
     Dosage: 44 MCG, 3 IN 1 WEEKS
     Dates: start: 20021201, end: 20030905
  2. PHENYTOIN SODIUM [Suspect]
     Dosage: INTRAVENOUS
     Route: 042
     Dates: start: 20030904, end: 20030906
  3. PHENYTOIN SODIUM [Concomitant]
  4. AMANTADINE HCL [Concomitant]
  5. HYDROCODONE [Concomitant]
  6. PAROXETINE HCL [Concomitant]

REACTIONS (7)
  - BODY TEMPERATURE INCREASED [None]
  - COMA [None]
  - ENCEPHALOPATHY [None]
  - GRAND MAL CONVULSION [None]
  - HEPATIC FAILURE [None]
  - INTERNATIONAL NORMALISED RATIO INCREASED [None]
  - PLATELET COUNT DECREASED [None]
